FAERS Safety Report 17663080 (Version 2)
Quarter: 2020Q3

REPORT INFORMATION
  Report Type: Spontaneous
  Country: US (occurrence: US)
  Receive Date: 20200413
  Receipt Date: 20200804
  Transmission Date: 20201102
  Serious: No
  Sender: FDA-Public Use
  Company Number: US-009507513-2004USA003420

PATIENT

DRUGS (1)
  1. CUBICIN [Suspect]
     Active Substance: DAPTOMYCIN
     Indication: ENTEROCOCCAL INFECTION
     Dosage: MIXED REGIMEN OF DAPTOMYCIN AT A DOSE OF 4 AND 6 MG/KG

REACTIONS (1)
  - Product use in unapproved indication [Unknown]
